FAERS Safety Report 14149255 (Version 4)
Quarter: 2018Q1

REPORT INFORMATION
  Report Type: Spontaneous
  Country: US (occurrence: US)
  Receive Date: 20171101
  Receipt Date: 20180116
  Transmission Date: 20180508
  Serious: Yes (Other)
  Sender: FDA-Public Use
  Company Number: US-B.I. PHARMACEUTICALS,INC./RIDGEFIELD-2017-BI-057664

PATIENT
  Age: 68 Year
  Sex: Male
  Weight: 83.9 kg

DRUGS (20)
  1. OFEV [Suspect]
     Active Substance: NINTEDANIB
     Indication: PRODUCT USED FOR UNKNOWN INDICATION
     Route: 065
  2. ORENITRAM [Suspect]
     Active Substance: TREPROSTINIL
     Route: 048
  3. ORENITRAM [Suspect]
     Active Substance: TREPROSTINIL
     Route: 048
  4. ORENITRAM [Suspect]
     Active Substance: TREPROSTINIL
     Route: 048
  5. ORENITRAM [Suspect]
     Active Substance: TREPROSTINIL
     Route: 048
  6. ORENITRAM [Suspect]
     Active Substance: TREPROSTINIL
     Route: 048
     Dates: start: 20170719
  7. ORENITRAM [Suspect]
     Active Substance: TREPROSTINIL
     Route: 048
     Dates: start: 20170913
  8. ORENITRAM [Suspect]
     Active Substance: TREPROSTINIL
     Route: 048
  9. ORENITRAM [Suspect]
     Active Substance: TREPROSTINIL
     Route: 048
  10. OPSUMIT [Concomitant]
     Active Substance: MACITENTAN
     Indication: PRODUCT USED FOR UNKNOWN INDICATION
     Route: 065
  11. ORENITRAM [Suspect]
     Active Substance: TREPROSTINIL
     Route: 048
     Dates: start: 20170720
  12. ORENITRAM [Suspect]
     Active Substance: TREPROSTINIL
     Route: 048
  13. ORENITRAM [Suspect]
     Active Substance: TREPROSTINIL
     Route: 048
     Dates: start: 20170913
  14. ORENITRAM [Suspect]
     Active Substance: TREPROSTINIL
     Indication: PULMONARY ARTERIAL HYPERTENSION
     Route: 048
     Dates: start: 20170719
  15. ORENITRAM [Suspect]
     Active Substance: TREPROSTINIL
     Route: 048
  16. ORENITRAM [Suspect]
     Active Substance: TREPROSTINIL
     Route: 048
  17. ORENITRAM [Suspect]
     Active Substance: TREPROSTINIL
     Route: 048
  18. ORENITRAM [Suspect]
     Active Substance: TREPROSTINIL
     Route: 048
  19. ORENITRAM [Suspect]
     Active Substance: TREPROSTINIL
     Route: 048
  20. ORENITRAM [Suspect]
     Active Substance: TREPROSTINIL
     Route: 048

REACTIONS (25)
  - Renal impairment [Unknown]
  - Fatigue [Not Recovered/Not Resolved]
  - Asthenia [Not Recovered/Not Resolved]
  - Cough [Unknown]
  - Decreased appetite [Unknown]
  - Tachycardia [Unknown]
  - Oxygen consumption increased [Unknown]
  - Dyspnoea [Not Recovered/Not Resolved]
  - Swelling face [Unknown]
  - Hypoaesthesia [Recovered/Resolved]
  - Disease progression [Unknown]
  - Headache [Unknown]
  - Nausea [Unknown]
  - Chest pain [Not Recovered/Not Resolved]
  - Neck pain [Recovered/Resolved]
  - Cyanosis [Unknown]
  - Oxygen saturation decreased [Unknown]
  - Therapy non-responder [Unknown]
  - Post procedural complication [Unknown]
  - Oedema peripheral [Not Recovered/Not Resolved]
  - Diarrhoea [Not Recovered/Not Resolved]
  - Dizziness [Unknown]
  - Bone pain [Unknown]
  - Dysgeusia [Unknown]
  - Pain in extremity [Recovered/Resolved]

NARRATIVE: CASE EVENT DATE: 2017
